FAERS Safety Report 25725708 (Version 1)
Quarter: 2025Q3

REPORT INFORMATION
  Report Type: Spontaneous
  Country: US (occurrence: US)
  Receive Date: 20250826
  Receipt Date: 20250826
  Transmission Date: 20251021
  Serious: Yes (Hospitalization, Other)
  Sender: NOVITIUM PHARMA
  Company Number: US-NOVITIUMPHARMA-2025USNVP02125

PATIENT
  Age: 66 Year
  Sex: Male

DRUGS (16)
  1. DEXAMETHASONE [Suspect]
     Active Substance: DEXAMETHASONE
     Indication: Oesophageal adenocarcinoma
  2. DEXAMETHASONE [Suspect]
     Active Substance: DEXAMETHASONE
     Indication: Oesophageal adenocarcinoma
  3. LEUCOVORIN [Concomitant]
     Active Substance: LEUCOVORIN\LEUCOVORIN CALCIUM
  4. LEUCOVORIN [Concomitant]
     Active Substance: LEUCOVORIN\LEUCOVORIN CALCIUM
  5. FLUOROURACIL [Concomitant]
     Active Substance: FLUOROURACIL
  6. FLUOROURACIL [Concomitant]
     Active Substance: FLUOROURACIL
  7. OXALIPLATIN [Concomitant]
     Active Substance: OXALIPLATIN
  8. OXALIPLATIN [Concomitant]
     Active Substance: OXALIPLATIN
  9. PACLITAXEL [Concomitant]
     Active Substance: PACLITAXEL
  10. PACLITAXEL [Concomitant]
     Active Substance: PACLITAXEL
  11. RAMUCIRUMAB [Concomitant]
     Active Substance: RAMUCIRUMAB
  12. RAMUCIRUMAB [Concomitant]
     Active Substance: RAMUCIRUMAB
  13. PEMBROLIZUMAB [Concomitant]
     Active Substance: PEMBROLIZUMAB
  14. PEMBROLIZUMAB [Concomitant]
     Active Substance: PEMBROLIZUMAB
  15. PEGFILGRASTIM [Concomitant]
     Active Substance: PEGFILGRASTIM
  16. PEGFILGRASTIM [Concomitant]
     Active Substance: PEGFILGRASTIM

REACTIONS (8)
  - Thrombocytopenia [Unknown]
  - Constipation [Recovering/Resolving]
  - Fatigue [Unknown]
  - Bone pain [Unknown]
  - Neuropathy peripheral [Unknown]
  - Pyrexia [Recovering/Resolving]
  - Malaise [Recovering/Resolving]
  - Nausea [Recovering/Resolving]
